FAERS Safety Report 7416879-5 (Version None)
Quarter: 2011Q2

REPORT INFORMATION
  Report Type: 
  Country: None (occurrence: None)
  Receive Date: 20110406
  Receipt Date: 20110322
  Transmission Date: 20111010
  Serious: Yes (Life-Threatening, Other)
  Sender: FDA-Public Use
  Company Number: 2011MA002730

PATIENT
  Age: 4 Year
  Sex: Male

DRUGS (1)
  1. BETAMETHASONE DIPROPIONATE OINTMENT USP, EQ. 0.05% (BASE) (AUGMENTED) [Suspect]
     Indication: ASTHMA

REACTIONS (3)
  - URTICARIA [None]
  - ANGIOEDEMA [None]
  - LOSS OF CONSCIOUSNESS [None]
